FAERS Safety Report 7287325-X (Version None)
Quarter: 2011Q1

REPORT INFORMATION
  Report Type: 
  Country: None (occurrence: None)
  Receive Date: 20110211
  Receipt Date: 20110207
  Transmission Date: 20110831
  Serious: No
  Sender: FDA-Public Use
  Company Number: US-BAYER-2011-012683

PATIENT
  Sex: Female

DRUGS (2)
  1. YAZ [Suspect]
     Dosage: UNK
     Dates: start: 20110125
  2. LEVONORGESTREL [Suspect]
     Indication: POST COITAL CONTRACEPTION
     Dosage: UNK
     Dates: start: 20110101, end: 20110101

REACTIONS (2)
  - PREGNANCY AFTER POST COITAL CONTRACEPTION [None]
  - SOMNOLENCE [None]
